FAERS Safety Report 5257350-9 (Version None)
Quarter: 2007Q1

REPORT INFORMATION
  Report Type: 
  Country: None (occurrence: None)
  Receive Date: 20070307
  Receipt Date: 20070302
  Transmission Date: 20070707
  Serious: Yes (Hospitalization)
  Sender: FDA-Public Use
  Company Number: GB-BRISTOL-MYERS SQUIBB COMPANY-13571617

PATIENT
  Age: 62 Year
  Sex: Female
  Weight: 58 kg

DRUGS (3)
  1. PACLITAXEL [Suspect]
     Indication: ENDOMETRIAL CANCER
     Dates: start: 20060208, end: 20060208
  2. CISPLATIN [Suspect]
     Indication: ENDOMETRIAL CANCER
     Dates: start: 20060208, end: 20060208
  3. ADRIAMYCIN PFS [Suspect]
     Indication: ENDOMETRIAL CANCER
     Dates: start: 20060208, end: 20060208

REACTIONS (2)
  - HERPES SIMPLEX [None]
  - NEUTROPENIC SEPSIS [None]
